FAERS Safety Report 9518356 (Version 2)
Quarter: 2013Q3

REPORT INFORMATION
  Report Type: Report from Study
  Country: GB (occurrence: GB)
  Receive Date: 20130912
  Receipt Date: 20130919
  Transmission Date: 20140515
  Serious: Yes (Hospitalization)
  Sender: FDA-Public Use
  Company Number: GB-MILLENNIUM PHARMACEUTICALS, INC.-2013JNJ000206

PATIENT
  Sex: 0

DRUGS (9)
  1. VELCADE [Suspect]
     Indication: DIFFUSE LARGE B-CELL LYMPHOMA
     Dosage: 2.5 MG, UNK
     Route: 065
     Dates: start: 20130729, end: 20130828
  2. RITUXIMAB [Suspect]
     Indication: DIFFUSE LARGE B-CELL LYMPHOMA
     Dosage: 700 MG, UNK
     Route: 065
     Dates: start: 20130708, end: 20130819
  3. CYCLOPHOSPHAMIDE [Suspect]
     Indication: DIFFUSE LARGE B-CELL LYMPHOMA
     Dosage: 1400 MG, UNK
     Route: 065
     Dates: start: 20130708, end: 20130819
  4. VINCRISTINE [Suspect]
     Indication: DIFFUSE LARGE B-CELL LYMPHOMA
     Dosage: 2 MG, UNK
     Route: 065
     Dates: start: 20130708, end: 20130819
  5. DOXORUBICIN [Suspect]
     Indication: DIFFUSE LARGE B-CELL LYMPHOMA
     Dosage: 95 MG, UNK
     Route: 065
     Dates: start: 20130708, end: 20130819
  6. PREDNISOLONE [Suspect]
     Indication: DIFFUSE LARGE B-CELL LYMPHOMA
     Dosage: 100 MG, UNK
     Route: 065
     Dates: start: 20130708, end: 20130823
  7. FLUCONAZOLE [Concomitant]
     Dosage: 50 MG, UNK
     Route: 048
     Dates: start: 20130708
  8. ACICLOVIR [Concomitant]
     Dosage: 200 MG, UNK
     Route: 048
     Dates: start: 20130708
  9. FLUOXETINE [Concomitant]
     Dosage: 20 MG, UNK
     Route: 048

REACTIONS (1)
  - Chest pain [Not Recovered/Not Resolved]
